FAERS Safety Report 5801331-0 (Version None)
Quarter: 2008Q3

REPORT INFORMATION
  Report Type: 
  Country: None (occurrence: None)
  Receive Date: 20080707
  Receipt Date: 20080623
  Transmission Date: 20090109
  Serious: Yes (Other)
  Sender: FDA-Public Use
  Company Number: US-JNJFOC-20080605890

PATIENT
  Sex: Female
  Weight: 87.09 kg

DRUGS (13)
  1. TYLENOL W/ CODEINE NO. 4 [Suspect]
     Indication: FIBROMYALGIA
     Dosage: 300 / 60 MG
     Route: 048
  2. TYLENOL W/ CODEINE NO. 3 [Suspect]
     Indication: FIBROMYALGIA
     Dosage: 300 / 30 MG
     Route: 048
  3. MOTRIN [Suspect]
     Route: 065
  4. MOTRIN [Suspect]
     Indication: FIBROMYALGIA
     Route: 065
  5. DEPO-MEDROL [Suspect]
     Indication: BACK PAIN
     Dosage: EFFECT OF THE DRUG ONLY LASTED FOR 30 DAYS
     Route: 008
  6. CELEBREX [Suspect]
     Indication: FIBROMYALGIA
     Dosage: DISCONTINUED AFTER A FEW DAYS BECAUSE HER DOCTOR THOUGHT IT WAS TAKEN OFF THE MARKET
     Route: 065
  7. PERCOCET [Suspect]
     Indication: FIBROMYALGIA
     Route: 065
  8. NAPROSYN [Concomitant]
     Indication: DRUG USE FOR UNKNOWN INDICATION
     Route: 065
  9. VASOTEC [Concomitant]
     Indication: BLOOD PRESSURE
     Route: 065
  10. HYDROCHLOROTHIAZIDE [Concomitant]
     Indication: BLOOD PRESSURE
     Route: 065
  11. ENALAPRIL MALEATE [Concomitant]
     Indication: BLOOD PRESSURE
     Route: 065
  12. ZOLOFT [Concomitant]
     Indication: DRUG USE FOR UNKNOWN INDICATION
     Route: 065
  13. CELESTONE TAB [Concomitant]
     Indication: MUSCULOSKELETAL DISCOMFORT
     Route: 008

REACTIONS (5)
  - ARTHRITIS [None]
  - DRUG INEFFECTIVE [None]
  - HALLUCINATION [None]
  - SCIATICA [None]
  - UNEVALUABLE EVENT [None]
